FAERS Safety Report 10073700 (Version 1)
Quarter: 2014Q2

REPORT INFORMATION
  Report Type: Spontaneous
  Country: GB (occurrence: GB)
  Receive Date: 20140411
  Receipt Date: 20140411
  Transmission Date: 20141212
  Serious: Yes (Hospitalization)
  Sender: FDA-Public Use
  Company Number: PHHY2014GB042611

PATIENT
  Age: 87 Year
  Sex: Male
  Weight: 79.5 kg

DRUGS (12)
  1. ACETYLSALICYLIC ACID [Suspect]
     Indication: MYOCARDIAL ISCHAEMIA
     Dosage: 75 MG, QD
     Dates: end: 20140324
  2. CLOPIDOGREL [Suspect]
     Indication: MYOCARDIAL ISCHAEMIA
     Dosage: 75 MG, QD
     Route: 048
     Dates: end: 20140324
  3. BISOPROLOL [Concomitant]
  4. FUROSEMIDE [Concomitant]
  5. ISOSORBIDE [Concomitant]
  6. LACTULOSE [Concomitant]
  7. LANSOPRAZOLE [Concomitant]
  8. PARACETAMOL [Concomitant]
  9. TAMSULOSIN [Concomitant]
  10. TRIMETHOPRIM [Concomitant]
  11. FINASTERIDE [Concomitant]
  12. SODIUM VALPROATE [Concomitant]

REACTIONS (1)
  - Haematemesis [Recovered/Resolved]
